FAERS Safety Report 4873778-0 (Version None)
Quarter: 2006Q1

REPORT INFORMATION
  Report Type: 
  Country: None (occurrence: None)
  Receive Date: 20060103
  Receipt Date: 20060103
  Transmission Date: 20060701
  Serious: No
  Sender: FDA-Public Use
  Company Number: None

PATIENT
  Sex: Male
  Weight: 85 kg

DRUGS (1)
  1. LAMISIL [Suspect]
     Indication: ONYCHOMYCOSIS
     Dosage: 250 MG   1X1
     Dates: start: 20010225, end: 20010407

REACTIONS (5)
  - ALLODYNIA [None]
  - MUSCLE CONTRACTIONS INVOLUNTARY [None]
  - MYOKYMIA [None]
  - PAIN [None]
  - PARAESTHESIA [None]
